FAERS Safety Report 8599646-9 (Version None)
Quarter: 2012Q3

REPORT INFORMATION
  Report Type: 
  Country: None (occurrence: None)
  Receive Date: 20120816
  Receipt Date: 20120814
  Transmission Date: 20120928
  Serious: Yes (Other)
  Sender: FDA-Public Use
  Company Number: JP-BAYER-2012-080424

PATIENT
  Age: 62 Year
  Sex: Female

DRUGS (3)
  1. LANSOPRAZOLE [Suspect]
     Indication: PROPHYLAXIS AGAINST GASTROINTESTINAL ULCER
     Dosage: DAILY DOSE 15 MG
     Dates: start: 20110501
  2. PREDNISOLONE [Concomitant]
     Indication: ANTIPHOSPHOLIPID SYNDROME
     Dosage: DAILY DOSE 5 MG
  3. ASPIRIN [Suspect]
     Indication: ANTIPHOSPHOLIPID SYNDROME
     Dosage: DAILY DOSE 100 MG
     Route: 048
     Dates: start: 20110501, end: 20110101

REACTIONS (1)
  - COLITIS MICROSCOPIC [None]
